FAERS Safety Report 8101743-9 (Version None)
Quarter: 2012Q1

REPORT INFORMATION
  Report Type: 
  Country: None (occurrence: None)
  Receive Date: 20120131
  Receipt Date: 20120120
  Transmission Date: 20120608
  Serious: Yes (Other)
  Sender: FDA-Public Use
  Company Number: PHEH2012US001054

PATIENT
  Sex: Female
  Weight: 58.503 kg

DRUGS (41)
  1. AZOPT [Concomitant]
     Dosage: % EYE DROP 1DROP 3XDAY
  2. NEURONTIN [Concomitant]
     Dosage: 400 MG, DAILY
  3. TESSALON [Concomitant]
     Dosage: UNK UKN, DAILY
  4. BENZONATATE [Concomitant]
     Dosage: 100 MG, TID
     Route: 048
  5. LISINOPRIL [Concomitant]
     Dosage: 20 MG, DAILY
     Route: 048
  6. MELOXICAM [Concomitant]
     Dosage: 7.5 MG, DAILY
  7. Q- TUSSIN DM [Concomitant]
     Dosage: 2TAP SOON AS NEEDED 10/100MG 5ML.
  8. PRIVINIL [Concomitant]
     Dosage: 20 MG, DAILY
  9. INSULIN HUMULIN 50/50 [Concomitant]
     Dosage: 0-11 UNITS
     Route: 058
  10. GUAIFENESIN W/DEXTROMETHORPHAN [Concomitant]
     Dosage: 10-100MG/5ML
     Route: 048
  11. MEVACOR [Concomitant]
     Dosage: 20 MG, DAILY
  12. GLUCAGON HYDROCHLORIDE [Concomitant]
     Dosage: 1 MG, UNK
     Route: 058
  13. GLIPIZIDE [Concomitant]
     Dosage: UNK UKN, UNK
  14. METOPROLOL TARTRATE [Concomitant]
     Dosage: 12.5 MG, BID
  15. BILBERRY [Concomitant]
     Dosage: 1000 MG, UNK
  16. METFORMIN HCL [Concomitant]
     Dosage: 500 MG, 4 X DAY
  17. PROCARDIA XL [Concomitant]
     Dosage: 60 MG, DAILY
  18. DIABETA [Concomitant]
     Dosage: 5 MG, DAILY
  19. PRADAXA [Concomitant]
     Dosage: UNK UKN, UNK
  20. ASPIRIN [Concomitant]
     Dosage: 325 MG,DAILY
     Route: 048
  21. SODIUM CHLORIDE [Concomitant]
     Dosage: 0.9 %, UNK
     Route: 042
  22. ACETAMINOPHEN [Concomitant]
     Dosage: 650 MG, BID
     Route: 048
  23. GLYBURIDE [Concomitant]
     Dosage: 10 MG, BID
     Route: 048
  24. MONTELUKAST [Concomitant]
     Dosage: 10 MG, DAILY
     Route: 048
  25. NIFEDIPINE [Concomitant]
     Dosage: 60 MG, DAILY
     Route: 048
  26. SINGULAIR [Concomitant]
     Dosage: 10 MG, DAILY
  27. CEPHALEXIN [Concomitant]
     Dosage: 500 MG, UNK
  28. TYLENOL W/ CODEINE [Concomitant]
     Dosage: 1 DF, 300/30MG 1XDAY,
  29. DEXTROSE 50% [Concomitant]
     Dosage: 25 ML, UNK
     Route: 042
  30. BRINZOLAMIDE [Concomitant]
     Dosage: 1 DRP, TID
  31. GABAPENTIN [Concomitant]
     Dosage: 400 MG, TID
     Route: 048
  32. NEXIUM [Concomitant]
     Dosage: 40MG DAILY
  33. NIFEDICAL [Concomitant]
     Dosage: 60MG 1XDAY,
  34. METHYLPREDNISOLONE [Concomitant]
     Dosage: 4MG AS DIRECTED,
  35. PANTOPRAZOLE [Concomitant]
     Dosage: 40 MG, UNK
  36. RECLAST [Suspect]
     Indication: OSTEOPOROSIS
     Dosage: 5 MG/100 ML/YEAR
     Route: 042
     Dates: start: 20120110
  37. CELEBREX [Concomitant]
     Dosage: 100 MG, BID
  38. COMBIGAN [Concomitant]
     Dosage: 1DROP 2XDAY,
  39. BRIMONIDINE TARTRATE [Concomitant]
     Dosage: 1 DRP (0.15%), BID
  40. LOVASTATIN [Concomitant]
     Dosage: 20 MG, QD
     Route: 048
  41. ADALAT [Concomitant]
     Dosage: UNK UKN, UNK

REACTIONS (18)
  - MEMORY IMPAIRMENT [None]
  - CEREBROVASCULAR ACCIDENT [None]
  - LETHARGY [None]
  - CONFUSIONAL STATE [None]
  - UNRESPONSIVE TO STIMULI [None]
  - GAIT DISTURBANCE [None]
  - CEREBRAL ATROPHY [None]
  - CAROTID ARTERY STENOSIS [None]
  - DYSARTHRIA [None]
  - MOANING [None]
  - ATRIAL FIBRILLATION [None]
  - TREMOR [None]
  - PAIN [None]
  - CEREBRAL ISCHAEMIA [None]
  - APHASIA [None]
  - TRANSIENT ISCHAEMIC ATTACK [None]
  - ASTHENIA [None]
  - FATIGUE [None]
